FAERS Safety Report 14697113 (Version 1)
Quarter: 2018Q1

REPORT INFORMATION
  Report Type: Spontaneous
  Country: US (occurrence: US)
  Receive Date: 20180330
  Receipt Date: 20180330
  Transmission Date: 20180509
  Serious: No
  Sender: FDA-Public Use
  Company Number: US-SA-2017SA106893

PATIENT
  Sex: Female

DRUGS (1)
  1. ALLEGRA [Suspect]
     Active Substance: FEXOFENADINE HYDROCHLORIDE
     Route: 048

REACTIONS (6)
  - Abdominal pain upper [Unknown]
  - Insomnia [Unknown]
  - Headache [Unknown]
  - Thirst [Unknown]
  - Throat tightness [Unknown]
  - Throat irritation [Unknown]
